FAERS Safety Report 10184544 (Version 2)
Quarter: 2014Q2

REPORT INFORMATION
  Report Type: Spontaneous
  Country: FI (occurrence: FI)
  Receive Date: 20140521
  Receipt Date: 20140521
  Transmission Date: 20141212
  Serious: Yes (Other)
  Sender: FDA-Public Use
  Company Number: FI-AMGEN-FINSP2014022623

PATIENT
  Age: 67 Year
  Sex: Male

DRUGS (6)
  1. XGEVA [Suspect]
     Indication: METASTASES TO BONE
     Dosage: 120 MG, Q4WK
     Route: 058
     Dates: start: 201111, end: 201309
  2. XGEVA [Suspect]
     Indication: PROSTATE CANCER METASTATIC
  3. ZYTIGA [Concomitant]
     Dosage: UNK
     Route: 065
     Dates: start: 2012
  4. PREDNISON [Concomitant]
     Dosage: UNK
     Route: 065
     Dates: start: 2011
  5. PROCREN [Concomitant]
     Dosage: UNK
     Route: 065
     Dates: start: 2007
  6. SOMAC [Concomitant]
     Route: 065

REACTIONS (1)
  - Fractured sacrum [Recovering/Resolving]
